FAERS Safety Report 8806046 (Version 1)
Quarter: 2012Q4

REPORT INFORMATION
  Report Type: 
  Country: US (occurrence: US)
  Receive Date: 20120925
  Receipt Date: 20120925
  Transmission Date: 20130627
  Serious: No
  Sender: FDA-Public Use
  Company Number: US-PFIZER INC-2012234106

PATIENT
  Age: 58 Year
  Sex: Female
  Weight: 77.1 kg

DRUGS (1)
  1. ARTHROTEC [Suspect]
     Indication: ARTHRALGIA
     Dosage: 200/75 mcg/mg, 2x/day
     Route: 048
     Dates: start: 20120916, end: 20120920

REACTIONS (1)
  - Drug ineffective [Unknown]
